FAERS Safety Report 19662038 (Version 2)
Quarter: 2021Q3

REPORT INFORMATION
  Report Type: Spontaneous
  Country: NZ (occurrence: NZ)
  Receive Date: 20210805
  Receipt Date: 20210813
  Transmission Date: 20211014
  Serious: Yes (Disabling)
  Sender: FDA-Public Use
  Company Number: NZ-ASTRAZENECA-2021A649951

PATIENT
  Age: 22510 Day
  Sex: Female
  Weight: 64 kg

DRUGS (1)
  1. DURVALUMAB. [Suspect]
     Active Substance: DURVALUMAB
     Indication: SMALL CELL LUNG CANCER
     Route: 041
     Dates: start: 20200520, end: 20210726

REACTIONS (2)
  - Arthralgia [Not Recovered/Not Resolved]
  - Immune-mediated dermatitis [Not Recovered/Not Resolved]

NARRATIVE: CASE EVENT DATE: 20210715
